APPROVED DRUG PRODUCT: TECHNIVIE
Active Ingredient: OMBITASVIR; PARITAPREVIR; RITONAVIR
Strength: 12.5MG;75MG;50MG **Federal Register determination that product was not discontinued or withdrawn for safety or effectiveness reasons**
Dosage Form/Route: TABLET;ORAL
Application: N207931 | Product #001
Applicant: ABBVIE INC
Approved: Jul 24, 2015 | RLD: Yes | RS: No | Type: DISCN

PATENTS:
Patent 8642538 | Expires: Sep 10, 2029
Patent 9044480 | Expires: Apr 10, 2031
Patent 9006387 | Expires: Jun 10, 2030
Patent 8686026 | Expires: Jun 9, 2031
Patent 8691938 | Expires: Apr 13, 2032
Patent 8420596 | Expires: Apr 10, 2031
Patent 8420596*PED | Expires: Oct 10, 2031